FAERS Safety Report 6614624-4 (Version None)
Quarter: 2010Q1

REPORT INFORMATION
  Report Type: 
  Country: None (occurrence: None)
  Receive Date: 20100226
  Receipt Date: 20100222
  Transmission Date: 20100710
  Serious: Yes (Death, Life-Threatening, Hospitalization, Other)
  Sender: FDA-Public Use
  Company Number: CRC-10-032

PATIENT
  Age: 36 Year
  Sex: Female

DRUGS (4)
  1. DIGOXIN [Suspect]
     Indication: CARDIAC FAILURE CONGESTIVE
     Dosage: ONE TABLET DAILY UNTIL  PASSED AWAY
     Dates: start: 20090701
  2. DIGOXIN [Suspect]
     Indication: TACHYCARDIA
     Dosage: ONE TABLET DAILY UNTIL  PASSED AWAY
     Dates: start: 20090701
  3. LIQUID POTASSIUM [Concomitant]
  4. CARDIZEM [Concomitant]

REACTIONS (7)
  - CARDIAC ARREST [None]
  - CONVULSION [None]
  - HEART RATE DECREASED [None]
  - HYPOPHAGIA [None]
  - KIDNEY INFECTION [None]
  - PYREXIA [None]
  - RENAL FAILURE [None]
